FAERS Safety Report 14099897 (Version 1)
Quarter: 2017Q4

REPORT INFORMATION
  Report Type: Spontaneous
  Country: BE (occurrence: BE)
  Receive Date: 20171017
  Receipt Date: 20171017
  Transmission Date: 20180321
  Serious: Yes (Other)
  Sender: FDA-Public Use
  Company Number: BE-SA-2017SA198726

PATIENT
  Age: 72 Year
  Sex: Male

DRUGS (3)
  1. FOLINIC ACID [Concomitant]
     Active Substance: LEUCOVORIN
     Indication: COLON CANCER
     Route: 065
     Dates: start: 2011, end: 2011
  2. FLUOROURACIL. [Concomitant]
     Active Substance: FLUOROURACIL
     Route: 065
     Dates: start: 2011, end: 2011
  3. ELOXATIN [Suspect]
     Active Substance: OXALIPLATIN
     Indication: COLON CANCER
     Route: 051
     Dates: start: 2011, end: 2011

REACTIONS (3)
  - Administration site inflammation [Recovered/Resolved]
  - Breast cancer metastatic [Unknown]
  - Administration site extravasation [Unknown]

NARRATIVE: CASE EVENT DATE: 2011
